FAERS Safety Report 8805080 (Version 2)
Quarter: 2012Q4

REPORT INFORMATION
  Report Type: 
  Country: US (occurrence: US)
  Receive Date: 20120924
  Receipt Date: 20121213
  Transmission Date: 20130627
  Serious: No
  Sender: FDA-Public Use
  Company Number: US-ALLERGAN-1211819US

PATIENT
  Age: 64 Year
  Sex: Female

DRUGS (2)
  1. LUMIGAN� 0.01% [Suspect]
     Indication: OCULAR HYPERTENSION
     Dosage: 2 Gtt, qhs
     Route: 047
     Dates: start: 20120224, end: 20120314
  2. LISINOPRIL [Concomitant]
     Indication: HYPERTENSION
     Dosage: 5 mg, qd

REACTIONS (5)
  - Nausea [Recovered/Resolved]
  - Paranasal sinus hypersecretion [Recovered/Resolved]
  - Vomiting [Recovered/Resolved]
  - Feeling abnormal [Recovered/Resolved]
  - Reaction to preservatives [Unknown]
